FAERS Safety Report 12676985 (Version 2)
Quarter: 2016Q4

REPORT INFORMATION
  Report Type: Report from Study
  Country: BR (occurrence: BR)
  Receive Date: 20160823
  Receipt Date: 20161007
  Transmission Date: 20170207
  Serious: Yes (Hospitalization, Other)
  Sender: FDA-Public Use
  Company Number: BR-BAYER-2016-157517

PATIENT
  Sex: Male

DRUGS (6)
  1. AMITRIPTYLINE [Concomitant]
     Active Substance: AMITRIPTYLINE
     Indication: SLEEP DISORDER
     Dosage: 1 DF, HS
     Route: 048
  2. DIPYRONE [Concomitant]
     Active Substance: DIPYRONE
     Indication: PYREXIA
     Dosage: 20 GTT, UNK
     Route: 048
     Dates: start: 2008
  3. RIVOTRIL [Concomitant]
     Active Substance: CLONAZEPAM
     Indication: SLEEP DISORDER
     Dosage: 1 DF, PRN AT NIGHT
     Route: 048
  4. CEFALIUM [Concomitant]
     Indication: MIGRAINE
     Dosage: 1-3 TABLETS, PRN
     Route: 048
  5. BETAFERON [Suspect]
     Active Substance: INTERFERON BETA-1B
     Indication: SECONDARY PROGRESSIVE MULTIPLE SCLEROSIS
     Dosage: 1 ML, QOD
     Route: 058
     Dates: start: 2008
  6. OMEPRAZOLE. [Concomitant]
     Active Substance: OMEPRAZOLE
     Indication: GASTRITIS
     Dosage: 1 DF, HS
     Route: 048
     Dates: start: 2012

REACTIONS (9)
  - Injection site discolouration [Not Recovered/Not Resolved]
  - Abdominal pain upper [Recovered/Resolved]
  - Hypoaesthesia [Unknown]
  - Cystitis [Recovered/Resolved]
  - Motor dysfunction [Unknown]
  - Fatigue [Not Recovered/Not Resolved]
  - Pyrexia [Not Recovered/Not Resolved]
  - Fat necrosis [Recovered/Resolved]
  - Memory impairment [Unknown]

NARRATIVE: CASE EVENT DATE: 2008
